FAERS Safety Report 4977837-3 (Version None)
Quarter: 2006Q1

REPORT INFORMATION
  Report Type: 
  Country: None (occurrence: None)
  Receive Date: 20060215
  Receipt Date: 20050114
  Transmission Date: 20060701
  Serious: Yes (Death)
  Sender: FDA-Public Use
  Company Number: MC200500052

PATIENT
  Age: 61 Year
  Sex: Male

DRUGS (4)
  1. ANGIOMAX [Suspect]
     Dosage: SEE IMAGE
     Route: 040
     Dates: start: 20041229, end: 20041229
  2. ANGIOMAX [Suspect]
     Dosage: SEE IMAGE
     Route: 040
     Dates: start: 20041229
  3. HEPARIN [Concomitant]
  4. PLAVIX [Concomitant]

REACTIONS (1)
  - THROMBOSIS [None]
